FAERS Safety Report 8414720-5 (Version None)
Quarter: 2012Q2

REPORT INFORMATION
  Report Type: 
  Country: None (occurrence: None)
  Receive Date: 20120605
  Receipt Date: 20120521
  Transmission Date: 20120825
  Serious: Yes (Death, Other)
  Sender: FDA-Public Use
  Company Number: CN-SPECTRUM PHARMACEUTICALS, INC.-12-F-CN-00083

PATIENT

DRUGS (2)
  1. FLUOROURACIL [Suspect]
     Indication: COLORECTAL CANCER
     Dosage: UNK
     Route: 065
  2. OTHER CHEMOTHERAPY AGENTS [Suspect]
     Indication: COLORECTAL CANCER
     Dosage: UNK
     Route: 065

REACTIONS (3)
  - IMPAIRED FASTING GLUCOSE [None]
  - ADVERSE EVENT [None]
  - DIABETES MELLITUS [None]
